FAERS Safety Report 18254969 (Version 1)
Quarter: 2020Q3

REPORT INFORMATION
  Report Type: Other
  Country: CN (occurrence: CN)
  Receive Date: 20200910
  Receipt Date: 20200910
  Transmission Date: 20201103
  Serious: Yes (Hospitalization)
  Sender: FDA-Public Use
  Company Number: CN-EMD SERONO-9184273

PATIENT
  Age: 67 Year
  Sex: Female

DRUGS (20)
  1. INSULIN GLARGINE RECOMBINANT [Suspect]
     Active Substance: INSULIN GLARGINE
     Dosage: 10U (DOSAGE REDUCED)
     Route: 058
  2. INSULIN ASPART [Suspect]
     Active Substance: INSULIN ASPART
     Dosage: DOSE REDUCED
     Route: 058
     Dates: start: 201712, end: 201712
  3. INSULIN ASPART [Suspect]
     Active Substance: INSULIN ASPART
     Dosage: DOSAGE DECREASED
     Route: 058
     Dates: start: 201801, end: 20180127
  4. SAXAGLIPTIN [Concomitant]
     Active Substance: SAXAGLIPTIN
     Indication: BLOOD GLUCOSE INCREASED
     Route: 048
  5. INSULIN ASPART [Suspect]
     Active Substance: INSULIN ASPART
     Dosage: UNKNOWN DOSAGE
     Route: 058
     Dates: start: 201801, end: 201801
  6. INSULIN ASPART [Suspect]
     Active Substance: INSULIN ASPART
     Dosage: UNKNOWN DOSAGE
     Route: 058
     Dates: start: 201712, end: 201712
  7. ATORVASTATIN [Concomitant]
     Active Substance: ATORVASTATIN
     Indication: ARTERIOSCLEROSIS
  8. METFORMIN [Suspect]
     Active Substance: METFORMIN HYDROCHLORIDE
     Indication: BLOOD GLUCOSE INCREASED
     Route: 048
     Dates: start: 2017
  9. LEVOTHYROXINE SODIUM. [Suspect]
     Active Substance: LEVOTHYROXINE SODIUM
     Indication: POST PROCEDURAL HYPOTHYROIDISM
     Route: 048
  10. INSULIN GLARGINE RECOMBINANT [Suspect]
     Active Substance: INSULIN GLARGINE
     Indication: BLOOD GLUCOSE INCREASED
     Dosage: 16U
     Route: 058
     Dates: start: 201712
  11. INSULIN ASPART [Suspect]
     Active Substance: INSULIN ASPART
     Indication: BLOOD GLUCOSE INCREASED
     Route: 058
     Dates: start: 201710, end: 2017
  12. INSULIN ASPART [Suspect]
     Active Substance: INSULIN ASPART
     Dosage: DOSAGE INCREASED
     Route: 058
     Dates: start: 201801, end: 201801
  13. REPAGLINIDE. [Concomitant]
     Active Substance: REPAGLINIDE
     Indication: BLOOD GLUCOSE INCREASED
     Route: 048
     Dates: start: 20171221
  14. ASPIRIN                            /00002701/ [Concomitant]
     Active Substance: ASPIRIN
     Indication: PLATELET AGGREGATION TEST
  15. METFORMIN [Suspect]
     Active Substance: METFORMIN HYDROCHLORIDE
     Dosage: DOSAGE INCREASED
     Route: 048
  16. CANDESARTAN. [Concomitant]
     Active Substance: CANDESARTAN
     Indication: BLOOD PRESSURE INCREASED
  17. INSULIN ASPART W/INSULIN ASPART PROTAMINE (CR [Suspect]
     Active Substance: INSULIN ASPART
     Indication: BLOOD GLUCOSE INCREASED
     Dosage: 27U IN THE MORNING, 7U IN THE NOON, AND 14U IN THE EVENING BEFORE MEALS
     Route: 058
     Dates: start: 2017, end: 2017
  18. INSULIN GLARGINE RECOMBINANT [Suspect]
     Active Substance: INSULIN GLARGINE
     Dates: end: 20180127
  19. INSULIN ASPART [Suspect]
     Active Substance: INSULIN ASPART
     Dosage: MAXIMUM DAILY AMOUNT OF INSULIN ASPART REACHED 70?80U
     Route: 058
     Dates: start: 201712
  20. ACARBOSE. [Suspect]
     Active Substance: ACARBOSE
     Indication: BLOOD GLUCOSE INCREASED
     Route: 048

REACTIONS (2)
  - Diabetic ketoacidosis [Recovered/Resolved]
  - Blood glucose abnormal [Recovered/Resolved]

NARRATIVE: CASE EVENT DATE: 201712
